FAERS Safety Report 23565978 (Version 1)
Quarter: 2024Q1

REPORT INFORMATION
  Report Type: Spontaneous
  Country: FR (occurrence: FR)
  Receive Date: 20240226
  Receipt Date: 20240226
  Transmission Date: 20240410
  Serious: Yes (Death, Congenital Anomaly, Other)
  Sender: FDA-Public Use
  Company Number: FR-009507513-2402FRA006854

PATIENT

DRUGS (1)
  1. IVERMECTIN [Suspect]
     Active Substance: IVERMECTIN
     Dosage: UNK
     Route: 064
     Dates: start: 20210205, end: 20210205

REACTIONS (1)
  - Congenital cardiovascular anomaly [Fatal]

NARRATIVE: CASE EVENT DATE: 20210101
